FAERS Safety Report 9729751 (Version 1)
Quarter: 2013Q4

REPORT INFORMATION
  Report Type: Spontaneous
  Country: US (occurrence: US)
  Receive Date: 20131204
  Receipt Date: 20131204
  Transmission Date: 20140711
  Serious: No
  Sender: FDA-Public Use
  Company Number: US-GILEAD-2009-0021983

PATIENT
  Sex: Male
  Weight: 95.25 kg

DRUGS (9)
  1. LETAIRIS [Suspect]
     Indication: PULMONARY ARTERIAL HYPERTENSION
     Route: 048
     Dates: start: 20090420
  2. ZOCOR [Concomitant]
  3. WARFARIN SODIUM [Concomitant]
  4. PROMETHAZINE [Concomitant]
  5. AVODART [Concomitant]
  6. LEXAPRO [Concomitant]
  7. PROTONIX [Concomitant]
  8. DARVOCET-N [Concomitant]
  9. LEVOTHYROXINE [Concomitant]

REACTIONS (3)
  - Abdominal pain upper [Recovered/Resolved]
  - Nasal congestion [Recovered/Resolved]
  - Dyspnoea [Recovered/Resolved]
